FAERS Safety Report 20791504 (Version 1)
Quarter: 2022Q2

REPORT INFORMATION
  Report Type: Spontaneous
  Country: FR (occurrence: FR)
  Receive Date: 20220505
  Receipt Date: 20220505
  Transmission Date: 20220721
  Serious: Yes (Hospitalization)
  Sender: FDA-Public Use
  Company Number: FR-PFIZER INC-202200651733

PATIENT
  Sex: Male
  Weight: 70 kg

DRUGS (18)
  1. VYNDAQEL [Suspect]
     Active Substance: TAFAMIDIS MEGLUMINE
     Indication: Cardiac amyloidosis
     Dosage: 20 MG, DAILY
     Dates: start: 20200626
  2. ELIQUIS [Concomitant]
     Active Substance: APIXABAN
     Dosage: 10 MG
  3. FUROSEMIDE [Concomitant]
     Active Substance: FUROSEMIDE
     Dosage: 80 MG
  4. POTASSIUM CHLORIDE [Concomitant]
     Active Substance: POTASSIUM CHLORIDE
  5. TAMSULOSIN [Concomitant]
     Active Substance: TAMSULOSIN
  6. LYRICA [Concomitant]
     Active Substance: PREGABALIN
     Dosage: UNK
     Dates: start: 20210112
  7. INSPRA [Concomitant]
     Active Substance: EPLERENONE
  8. COLCHICINE\DICYCLOMINE HYDROCHLORIDE [Concomitant]
     Active Substance: COLCHICINE\DICYCLOMINE HYDROCHLORIDE
  9. ALLOPURINOL [Concomitant]
     Active Substance: ALLOPURINOL
  10. ALDACTONE [Concomitant]
     Active Substance: SPIRONOLACTONE
  11. BUMETANIDE [Concomitant]
     Active Substance: BUMETANIDE
  12. DUPHALAC [Concomitant]
     Active Substance: LACTULOSE
  13. DOLIPRANE [Concomitant]
     Active Substance: ACETAMINOPHEN
     Dosage: UNK, AS NEEDED
  14. LANSOPRAZOLE [Concomitant]
     Active Substance: LANSOPRAZOLE
  15. ONDANSETRON [Concomitant]
     Active Substance: ONDANSETRON
     Dosage: UNK, 1X/DAY
  16. SIMVASTATIN [Concomitant]
     Active Substance: SIMVASTATIN
  17. BAMBUTEROL HYDROCHLORIDE [Concomitant]
     Active Substance: BAMBUTEROL HYDROCHLORIDE
  18. ALLOPURINOL [Concomitant]
     Active Substance: ALLOPURINOL

REACTIONS (1)
  - Cardiac ablation [Unknown]
